FAERS Safety Report 7282738-4 (Version None)
Quarter: 2011Q1

REPORT INFORMATION
  Report Type: 
  Country: None (occurrence: None)
  Receive Date: 20110209
  Receipt Date: 20110127
  Transmission Date: 20110831
  Serious: Yes (Other)
  Sender: FDA-Public Use
  Company Number: PHBS2003BR05644

PATIENT
  Age: 40 Year
  Sex: Male
  Weight: 85 kg

DRUGS (4)
  1. LEPONEX [Suspect]
     Dosage: 100 MG, UNK
  2. MEDROL [Concomitant]
     Dosage: 50 MG, UNK
  3. LEPONEX [Suspect]
     Indication: SCHIZOPHRENIA
     Dosage: 300 MG/D
     Route: 048
     Dates: start: 20021201
  4. PROMETHAZINE [Concomitant]
     Dosage: 25 MG, UNK

REACTIONS (9)
  - DYSPEPSIA [None]
  - URINARY RETENTION [None]
  - UPPER AIRWAY OBSTRUCTION [None]
  - FATIGUE [None]
  - PLATELET COUNT DECREASED [None]
  - LEFT VENTRICULAR HYPERTROPHY [None]
  - BLOOD BILIRUBIN INCREASED [None]
  - CONSTIPATION [None]
  - AGITATION [None]
